FAERS Safety Report 9198322 (Version 1)
Quarter: 2013Q1

REPORT INFORMATION
  Report Type: Spontaneous
  Country: FR (occurrence: FR)
  Receive Date: 20130329
  Receipt Date: 20130329
  Transmission Date: 20140127
  Serious: Yes (Hospitalization)
  Sender: FDA-Public Use
  Company Number: FR-GE HEALTHCARE MEDICAL DIAGNOSTICS-VISP-NO-1303S-0464

PATIENT
  Age: 48 Year
  Sex: Female

DRUGS (6)
  1. VISIPAQUE [Suspect]
     Indication: SUBARACHNOID HAEMORRHAGE
     Route: 042
     Dates: start: 20120820, end: 20120820
  2. VISIPAQUE [Suspect]
     Indication: INTRACRANIAL ANEURYSM
     Route: 042
     Dates: start: 20120823, end: 20120823
  3. VISIPAQUE [Suspect]
     Indication: DIAGNOSTIC PROCEDURE
  4. IOMERON [Suspect]
     Indication: SUBARACHNOID HAEMORRHAGE
     Dates: start: 20120818, end: 20120818
  5. IOMERON [Suspect]
     Indication: INTRACRANIAL ANEURYSM
  6. IOMERON [Suspect]
     Indication: DIAGNOSTIC PROCEDURE

REACTIONS (2)
  - Drug eruption [Recovered/Resolved]
  - Pruritus [Recovered/Resolved]
